FAERS Safety Report 11900102 (Version 1)
Quarter: 2016Q1

REPORT INFORMATION
  Report Type: Report from Study
  Country: US (occurrence: US)
  Receive Date: 20160108
  Receipt Date: 20160108
  Transmission Date: 20160526
  Serious: No
  Sender: FDA-Public Use
  Company Number: US-ABBVIE-15P-163-1430831-00

PATIENT
  Sex: Male
  Weight: 91.71 kg

DRUGS (2)
  1. RIBAVIRIN. [Concomitant]
     Active Substance: RIBAVIRIN
     Indication: PRODUCT USED FOR UNKNOWN INDICATION
  2. VIEKIRA PAK [Suspect]
     Active Substance: DASABUVIR\OMBITASVIR\PARITAPREVIR\RITONAVIR
     Indication: HEPATITIS C
     Dosage: TAKE VIEKIRA PER MANUFACTURE PACKAGE DIRECTIONS IN THE AM AND PM WITH FOOD
     Route: 065
     Dates: start: 20150701

REACTIONS (3)
  - Heart rate irregular [Unknown]
  - Anxiety [Unknown]
  - Palpitations [Unknown]
